FAERS Safety Report 5737637-3 (Version None)
Quarter: 2008Q2

REPORT INFORMATION
  Report Type: 
  Country: None (occurrence: None)
  Receive Date: 20080513
  Receipt Date: 20080513
  Transmission Date: 20081010
  Serious: Yes (Other)
  Sender: FDA-Public Use
  Company Number: None

PATIENT
  Sex: Male

DRUGS (8)
  1. DIGOXIN [Suspect]
     Dosage: ONE DAILY PO
     Route: 048
     Dates: start: 20080218, end: 20080508
  2. SYNTHROID [Concomitant]
  3. DIAZEPAM [Concomitant]
  4. WARFARIN SODIUM [Concomitant]
  5. CRESTOR [Concomitant]
  6. METANX [Concomitant]
  7. GLIMEPIRIDE [Concomitant]
  8. CARVEDILOL [Concomitant]

REACTIONS (3)
  - DIZZINESS [None]
  - OEDEMA PERIPHERAL [None]
  - PHARMACEUTICAL PRODUCT COMPLAINT [None]
